FAERS Safety Report 15413904 (Version 1)
Quarter: 2018Q3

REPORT INFORMATION
  Report Type: Report from Study
  Country: US (occurrence: US)
  Receive Date: 20180921
  Receipt Date: 20180921
  Transmission Date: 20181010
  Serious: Yes (Other)
  Sender: FDA-Public Use
  Company Number: US-SA-2018SA118921

PATIENT
  Age: 35 Year
  Sex: Female

DRUGS (1)
  1. AGALSIDASE BETA [Suspect]
     Active Substance: AGALSIDASE BETA
     Indication: FABRY^S DISEASE
     Dosage: DOSE?125(UNITS NOT PROVIDED) FREUENCY?Q2
     Route: 041
     Dates: start: 20180405

REACTIONS (15)
  - Loss of consciousness [Not Recovered/Not Resolved]
  - Epistaxis [Not Recovered/Not Resolved]
  - Nausea [Not Recovered/Not Resolved]
  - Lethargy [Not Recovered/Not Resolved]
  - Face oedema [Not Recovered/Not Resolved]
  - Feeling cold [Not Recovered/Not Resolved]
  - Oropharyngeal pain [Recovering/Resolving]
  - Toothache [Not Recovered/Not Resolved]
  - Urine abnormality [Not Recovered/Not Resolved]
  - Sinusitis [Recovering/Resolving]
  - Sneezing [Recovering/Resolving]
  - Rhinorrhoea [Recovering/Resolving]
  - Pyrexia [Recovering/Resolving]
  - Arthralgia [Not Recovered/Not Resolved]
  - Headache [Not Recovered/Not Resolved]

NARRATIVE: CASE EVENT DATE: 2018
